FAERS Safety Report 16271592 (Version 1)
Quarter: 2019Q2

REPORT INFORMATION
  Report Type: Spontaneous
  Country: US (occurrence: US)
  Receive Date: 20190506
  Receipt Date: 20190506
  Transmission Date: 20190711
  Serious: No
  Sender: FDA-Public Use
  Company Number: US-B.I. PHARMACEUTICALS,INC./RIDGEFIELD-2019-BI-020499

PATIENT
  Sex: Female

DRUGS (2)
  1. MIRAPEX [Suspect]
     Active Substance: PRAMIPEXOLE DIHYDROCHLORIDE
     Indication: PARKINSON^S DISEASE
     Dosage: 1 TABLET IN THE AM AND ONE-HALF TABLET AT 4PM;  FORM STRENGTH: 1.5 MG; FORMULATION: TABLET
     Route: 048
  2. RYTARY [Concomitant]
     Active Substance: CARBIDOPA\LEVODOPA
     Indication: PARKINSON^S DISEASE
     Route: 065

REACTIONS (1)
  - Drug ineffective [Recovered/Resolved]
